FAERS Safety Report 10727062 (Version 1)
Quarter: 2015Q1

REPORT INFORMATION
  Report Type: Spontaneous
  Country: US (occurrence: None)
  Receive Date: 20150120
  Receipt Date: 20150120
  Transmission Date: 20150721
  Serious: Yes (Life-Threatening, Hospitalization)
  Sender: FDA-Public Use
  Company Number: None

PATIENT
  Age: 7 Year
  Sex: Female
  Weight: 38 kg

DRUGS (14)
  1. ZONEGRAN [Concomitant]
     Active Substance: ZONISAMIDE
  2. ALBUTEROL. [Concomitant]
     Active Substance: ALBUTEROL
  3. KEPPRA? [Concomitant]
  4. KLONOPIN [Concomitant]
     Active Substance: CLONAZEPAM
  5. ROBINUL [Concomitant]
     Active Substance: GLYCOPYRROLATE
  6. MIRALAX??? [Concomitant]
  7. BUDESONIDE. [Concomitant]
     Active Substance: BUDESONIDE
  8. ZANTAC [Concomitant]
     Active Substance: RANITIDINE HYDROCHLORIDE
  9. BACLOFEN. [Concomitant]
     Active Substance: BACLOFEN
  10. ZYRTEC [Concomitant]
     Active Substance: CETIRIZINE HYDROCHLORIDE
  11. MELATONIN [Concomitant]
     Active Substance: MELATONIN
  12. MVI [Concomitant]
     Active Substance: VITAMINS
  13. LEVETIRACETAM 100MG/ML PL00427/0184 [Suspect]
     Active Substance: LEVETIRACETAM
     Indication: EPILEPSY
     Route: 048
     Dates: start: 20130601, end: 20140812
  14. VITAMIN D [Concomitant]
     Active Substance: CHOLECALCIFEROL

REACTIONS (2)
  - Pancreatitis acute [None]
  - Pancreatitis relapsing [None]

NARRATIVE: CASE EVENT DATE: 20140709
